FAERS Safety Report 20651452 (Version 1)
Quarter: 2022Q1

REPORT INFORMATION
  Report Type: Report from Study
  Country: CA (occurrence: CA)
  Receive Date: 20220330
  Receipt Date: 20220330
  Transmission Date: 20220423
  Serious: Yes (Hospitalization)
  Sender: FDA-Public Use
  Company Number: CA-ABBVIE-22K-028-4306003-00

PATIENT
  Sex: Female

DRUGS (1)
  1. RINVOQ [Suspect]
     Active Substance: UPADACITINIB
     Indication: Rheumatoid arthritis
     Route: 048
     Dates: start: 20201013, end: 20220213

REACTIONS (6)
  - Ureteral neoplasm [Unknown]
  - Bladder mass [Unknown]
  - Kidney infection [Unknown]
  - White blood cell count increased [Unknown]
  - Dyspnoea [Recovering/Resolving]
  - Pneumonitis [Unknown]
